FAERS Safety Report 6640795-X (Version None)
Quarter: 2010Q1

REPORT INFORMATION
  Report Type: 
  Country: None (occurrence: None)
  Receive Date: 20100318
  Receipt Date: 20100309
  Transmission Date: 20100710
  Serious: Yes (Disabling, Other)
  Sender: FDA-Public Use
  Company Number: BR-ELI_LILLY_AND_COMPANY-BR200912000725

PATIENT
  Sex: Female
  Weight: 53 kg

DRUGS (2)
  1. HUMALOG [Suspect]
     Indication: TYPE 1 DIABETES MELLITUS
     Dosage: 3 IU, 2/D
     Route: 058
     Dates: start: 20070101, end: 20090101
  2. ENALAPRIL MALEATE [Concomitant]
     Indication: HYPERTENSION
     Dosage: 5 MG, 2/D
     Route: 065

REACTIONS (8)
  - ANGIOPATHY [None]
  - ASTHENIA [None]
  - BLINDNESS UNILATERAL [None]
  - FLUID RETENTION [None]
  - HAEMORRHAGE [None]
  - HYPERHIDROSIS [None]
  - HYPOGLYCAEMIA [None]
  - OCULAR VASCULAR DISORDER [None]
